FAERS Safety Report 25453189 (Version 1)
Quarter: 2025Q2

REPORT INFORMATION
  Report Type: Spontaneous
  Country: US (occurrence: US)
  Receive Date: 20250618
  Receipt Date: 20250618
  Transmission Date: 20250717
  Serious: No
  Sender: AMGEN
  Company Number: US-AMGEN-USASP2025115879

PATIENT
  Age: 80 Year
  Sex: Female

DRUGS (2)
  1. LUMAKRAS [Suspect]
     Active Substance: SOTORASIB
     Indication: Product used for unknown indication
     Route: 065
  2. LUMAKRAS [Suspect]
     Active Substance: SOTORASIB
     Route: 065

REACTIONS (2)
  - Memory impairment [Unknown]
  - Incorrect dose administered [Unknown]
